FAERS Safety Report 11894893 (Version 1)
Quarter: 2016Q1

REPORT INFORMATION
  Report Type: Spontaneous
  Country: FR (occurrence: FR)
  Receive Date: 20160107
  Receipt Date: 20160107
  Transmission Date: 20160526
  Serious: Yes (Other)
  Sender: FDA-Public Use
  Company Number: FR-SA-2016SA001285

PATIENT
  Age: 67 Year
  Sex: Male

DRUGS (11)
  1. TARDYFERON [Concomitant]
     Active Substance: FERROUS SULFATE\FOLIC ACID
     Dosage: 80 MG
  2. THYMOGLOBULINE [Suspect]
     Active Substance: LAPINE T-LYMPHOCYTE IMMUNE GLOBULIN
     Dosage: TOTAL OF 15 DF
     Route: 042
     Dates: start: 20151006, end: 20151015
  3. KAYEXALATE [Concomitant]
     Active Substance: SODIUM POLYSTYRENE SULFONATE
  4. UVEDOSE [Concomitant]
     Active Substance: CHOLECALCIFEROL
     Dosage: 100000 IU
  5. INEXIUM [Concomitant]
     Active Substance: ESOMEPRAZOLE
     Dosage: 40 MG
  6. EXFORGE [Concomitant]
     Active Substance: AMLODIPINE BESYLATE\VALSARTAN
     Dosage: (5 MG/80 MG)
  7. SOLUPRED [Concomitant]
     Active Substance: PREDNISOLONE
  8. MYFORTIC [Concomitant]
     Active Substance: MYCOPHENOLATE SODIUM
  9. CALCIDIA [Concomitant]
     Active Substance: CALCIUM POLYCARBOPHIL
  10. PERMIXON [Concomitant]
     Active Substance: SAW PALMETTO
     Dosage: 160 MG
  11. ZYLORIC [Concomitant]
     Active Substance: ALLOPURINOL
     Dosage: 200 MG

REACTIONS (1)
  - Autoimmune haemolytic anaemia [Recovered/Resolved]

NARRATIVE: CASE EVENT DATE: 20151006
